FAERS Safety Report 17988013 (Version 1)
Quarter: 2020Q3

REPORT INFORMATION
  Report Type: Spontaneous
  Country: US (occurrence: US)
  Receive Date: 20200706
  Receipt Date: 20200706
  Transmission Date: 20201103
  Serious: Yes (Hospitalization)
  Sender: FDA-Public Use
  Company Number: None

PATIENT
  Age: 49 Year
  Sex: Male
  Weight: 90.1 kg

DRUGS (1)
  1. REMDESIVIR. [Suspect]
     Active Substance: REMDESIVIR
     Indication: COVID-19
     Dates: start: 20200524, end: 20200601

REACTIONS (16)
  - Respiratory failure [None]
  - Taste disorder [None]
  - Chest X-ray abnormal [None]
  - Blood urea increased [None]
  - SARS-CoV-2 test positive [None]
  - Interleukin level increased [None]
  - C-reactive protein increased [None]
  - Aspartate aminotransferase increased [None]
  - Dyspnoea [None]
  - Blood creatinine increased [None]
  - Alanine aminotransferase increased [None]
  - Parosmia [None]
  - Blood lactate dehydrogenase increased [None]
  - COVID-19 [None]
  - Platelet count decreased [None]
  - Blood fibrinogen increased [None]

NARRATIVE: CASE EVENT DATE: 20200601
